FAERS Safety Report 26102824 (Version 1)
Quarter: 2025Q4

REPORT INFORMATION
  Report Type: Spontaneous
  Country: TR (occurrence: TR)
  Receive Date: 20251128
  Receipt Date: 20251128
  Transmission Date: 20260117
  Serious: Yes (Other)
  Sender: ELI LILLY AND COMPANY
  Company Number: TR-ELI_LILLY_AND_COMPANY-TR202511024549

PATIENT
  Age: 2 Year
  Sex: Female

DRUGS (10)
  1. BARICITINIB [Suspect]
     Active Substance: BARICITINIB
     Indication: Juvenile idiopathic arthritis
     Dosage: 2 MG, DAILY
     Route: 065
  2. BARICITINIB [Suspect]
     Active Substance: BARICITINIB
     Dosage: 4 MG, DAILY
     Route: 065
  3. ANAKINRA [Suspect]
     Active Substance: ANAKINRA
     Indication: Juvenile idiopathic arthritis
     Dosage: 100 MG, WEEKLY (1/W)
     Route: 065
  4. CYCLOSPORINE [Concomitant]
     Active Substance: CYCLOSPORINE
     Indication: Juvenile idiopathic arthritis
     Dosage: 1 MG/KG, DAILY
     Route: 065
  5. CYCLOSPORINE [Concomitant]
     Active Substance: CYCLOSPORINE
     Dosage: 4 MG/KG, DAILY
     Route: 065
  6. CYCLOSPORINE [Concomitant]
     Active Substance: CYCLOSPORINE
     Dosage: 8 MG/KG, DAILY
     Route: 065
  7. DEXAMETHASONE [Concomitant]
     Active Substance: DEXAMETHASONE
     Indication: Juvenile idiopathic arthritis
     Dosage: 0.2 MG/M2, DAILY
     Route: 065
  8. SULFAMETHOXAZOLE\TRIMETHOPRIM [Concomitant]
     Active Substance: SULFAMETHOXAZOLE\TRIMETHOPRIM
     Indication: Prophylaxis
     Dosage: UNK, UNKNOWN
     Route: 065
  9. ACYCLOVIR [Concomitant]
     Active Substance: ACYCLOVIR
     Indication: Prophylaxis
     Dosage: UNK, UNKNOWN
     Route: 065
  10. FLUCONAZOLE [Concomitant]
     Active Substance: FLUCONAZOLE
     Indication: Prophylaxis
     Dosage: UNK, UNKNOWN
     Route: 065

REACTIONS (6)
  - Pleural cyst [Unknown]
  - Viral infection [Unknown]
  - Juvenile idiopathic arthritis [Unknown]
  - Juvenile idiopathic arthritis [Unknown]
  - Pyrexia [Unknown]
  - Rash [Unknown]
